FAERS Safety Report 5768657-0 (Version None)
Quarter: 2008Q2

REPORT INFORMATION
  Report Type: 
  Country: None (occurrence: None)
  Receive Date: 20080612
  Receipt Date: 20080310
  Transmission Date: 20081010
  Serious: No
  Sender: FDA-Public Use
  Company Number: US-ABBOTT-08P-163-0442049-00

PATIENT
  Sex: Female
  Weight: 123 kg

DRUGS (11)
  1. HUMIRA [Suspect]
     Indication: CROHN'S DISEASE
     Route: 058
     Dates: start: 20080101
  2. BISELECT [Concomitant]
     Indication: HYPERTENSION
     Dosage: 10MG/625MG
     Route: 048
  3. CITALOPRAM HYDROBROMIDE [Concomitant]
     Indication: DEPRESSION
     Route: 048
  4. LORAZEPAM [Concomitant]
     Indication: DEPRESSION
     Route: 048
  5. GABAPENTIN [Concomitant]
     Indication: PAIN
     Dosage: 2 TABS AT 6AM, 3 TABS AT 12PM, 2 TABS AT 6PM, 2 TABS AT 12AM
     Route: 048
  6. ETH-OXYDOSE (LIQUID FORM OF OXYCONTIN) [Concomitant]
     Indication: PAIN MANAGEMENT
     Dosage: 20ML DROP
  7. DURAGESIC-100 [Concomitant]
     Indication: PAIN MANAGEMENT
  8. TEMAPEPAM [Concomitant]
     Indication: SLEEP DISORDER
     Route: 048
  9. POTASSIUM CHLORIDE [Concomitant]
     Indication: BLOOD POTASSIUM DECREASED
     Route: 048
  10. LEVIMIR INSULIN [Concomitant]
     Indication: DIABETES MELLITUS
     Route: 058
  11. NOVOLOG [Concomitant]
     Indication: DIABETES MELLITUS
     Route: 058

REACTIONS (3)
  - ERYTHEMA [None]
  - PRURITUS [None]
  - SUNBURN [None]
